FAERS Safety Report 8379022-4 (Version None)
Quarter: 2012Q2

REPORT INFORMATION
  Report Type: 
  Country: None (occurrence: None)
  Receive Date: 20120522
  Receipt Date: 20120522
  Transmission Date: 20120825
  Serious: Yes (Other)
  Sender: FDA-Public Use
  Company Number: None

PATIENT
  Sex: Male
  Weight: 108.8633 kg

DRUGS (1)
  1. MIRTAZAPINE [Suspect]
     Indication: SOMNOLENCE
     Dosage: 30MG 1/2 FOR 4 DAYS; 1 TABLET AFTER PER NIGHT  LATE FEB - 12 + 1 PART MARCH

REACTIONS (4)
  - DIZZINESS [None]
  - PHOTOPHOBIA [None]
  - VISION BLURRED [None]
  - IMPAIRED DRIVING ABILITY [None]
